FAERS Safety Report 4641947-0 (Version None)
Quarter: 2005Q2

REPORT INFORMATION
  Report Type: 
  Country: None (occurrence: None)
  Receive Date: 20050421
  Receipt Date: 20050407
  Transmission Date: 20051028
  Serious: Yes (Hospitalization)
  Sender: FDA-Public Use
  Company Number: TPA2005A00145

PATIENT
  Age: 63 Year
  Sex: Female
  Weight: 85.2762 kg

DRUGS (8)
  1. ACTOS [Suspect]
     Indication: DIABETES MELLITUS NON-INSULIN-DEPENDENT
     Dosage: 45 + 30 MG, 1 IN 1 D, PER ORAL
     Route: 048
     Dates: start: 20041127, end: 20050103
  2. ACTOS [Suspect]
     Indication: DIABETES MELLITUS NON-INSULIN-DEPENDENT
     Dosage: 45 + 30 MG, 1 IN 1 D, PER ORAL
     Route: 048
     Dates: start: 20050103
  3. GLUCOTROL XL (GLIPIZIDE) (20 MILLIGRAM) [Concomitant]
  4. TOPROL (METOPROLOL-)(100 MILLIGRAM) [Concomitant]
  5. LASIX [Concomitant]
  6. GLUCOTROL XL [Concomitant]
  7. TOPROL (METOPROLOL) [Concomitant]
  8. LASIX [Concomitant]

REACTIONS (5)
  - BLOOD GLUCOSE INCREASED [None]
  - CARDIAC FAILURE CONGESTIVE [None]
  - CORONARY ARTERY DISEASE [None]
  - OEDEMA PERIPHERAL [None]
  - RENAL FAILURE CHRONIC [None]
